FAERS Safety Report 22964054 (Version 3)
Quarter: 2023Q4

REPORT INFORMATION
  Report Type: Spontaneous
  Country: US (occurrence: None)
  Receive Date: 20230921
  Receipt Date: 20231124
  Transmission Date: 20240110
  Serious: No
  Sender: FDA-Public Use
  Company Number: 2023A208597

PATIENT
  Age: 69 Year
  Sex: Female

DRUGS (1)
  1. SYMBICORT [Suspect]
     Active Substance: BUDESONIDE\FORMOTEROL FUMARATE DIHYDRATE
     Indication: Cough
     Dosage: 160/4.120 INHALATIONS. UNKNOWN
     Route: 055

REACTIONS (9)
  - Chest discomfort [Unknown]
  - Drug ineffective [Unknown]
  - Device use issue [Not Recovered/Not Resolved]
  - Device use confusion [Unknown]
  - Mental impairment [Not Recovered/Not Resolved]
  - Wrong technique in device usage process [Recovered/Resolved]
  - Wrong technique in product usage process [Recovered/Resolved]
  - Drug dose omission by device [Unknown]
  - Cough [Unknown]

NARRATIVE: CASE EVENT DATE: 20230101
